FAERS Safety Report 5100731-4 (Version None)
Quarter: 2006Q3

REPORT INFORMATION
  Report Type: 
  Country: None (occurrence: None)
  Receive Date: 20060906
  Receipt Date: 20060825
  Transmission Date: 20061208
  Serious: Yes (Other)
  Sender: FDA-Public Use
  Company Number: 2006088145

PATIENT
  Age: 43 Year
  Sex: Female
  Weight: 75 kg

DRUGS (2)
  1. ARTHROTEC [Suspect]
     Indication: TENDONITIS
     Dosage: 75 MG (75 MG, AS NECESSARY), ORAL
     Route: 048
     Dates: start: 20060629, end: 20060706
  2. LEVOTHYROXINE SODIUM [Concomitant]

REACTIONS (1)
  - UTERINE LEIOMYOMA [None]
